FAERS Safety Report 19493371 (Version 2)
Quarter: 2022Q2

REPORT INFORMATION
  Report Type: Spontaneous
  Country: US (occurrence: US)
  Receive Date: 20210705
  Receipt Date: 20220412
  Transmission Date: 20220721
  Serious: No
  Sender: FDA-Public Use
  Company Number: US-PFIZER INC-2021388781

PATIENT
  Age: 68 Year
  Sex: Female
  Weight: 90.72 kg

DRUGS (4)
  1. CHANTIX [Suspect]
     Active Substance: VARENICLINE TARTRATE
     Indication: Smoking cessation therapy
     Dosage: 0.5 MG
  2. CHANTIX [Suspect]
     Active Substance: VARENICLINE TARTRATE
     Dosage: 1 MG
  3. CHANTIX [Suspect]
     Active Substance: VARENICLINE TARTRATE
     Dosage: 1.5 MG, DAILY (0.5MG IN THE MORNING AND THEN 1MG AT NIGHT [0.5 MG])
     Dates: start: 2021
  4. CHANTIX [Suspect]
     Active Substance: VARENICLINE TARTRATE
     Dosage: 1.5 MG, DAILY (0.5MG IN THE MORNING AND THEN 1MG AT NIGHT [1 MG])
     Dates: start: 2021

REACTIONS (4)
  - Nausea [Recovering/Resolving]
  - Product prescribing error [Unknown]
  - Intentional product misuse [Unknown]
  - Recalled product administered [Unknown]

NARRATIVE: CASE EVENT DATE: 20210101
